FAERS Safety Report 4704929-6 (Version None)
Quarter: 2005Q3

REPORT INFORMATION
  Report Type: 
  Country: None (occurrence: None)
  Receive Date: 20050701
  Receipt Date: 20010713
  Transmission Date: 20060218
  Serious: Yes (Hospitalization, Other)
  Sender: FDA-Public Use
  Company Number: 10913671

PATIENT
  Age: 1 Day
  Sex: Male
  Weight: 3 kg

DRUGS (13)
  1. VIDEX [Suspect]
     Dosage: EXPOSURE FROM WEEK 23 OF GESTATION.
     Route: 064
     Dates: end: 20000316
  2. VIDEX [Suspect]
     Route: 048
     Dates: start: 20000316, end: 20000427
  3. CRIXIVAN [Suspect]
     Dosage: EXPOSURE FROM WEEK 23 OF GESTATION.
     Route: 064
     Dates: end: 20000316
  4. NORVIR [Suspect]
     Dosage: EXPOSURE FROM WEEK 23 OF GESTATION.
     Route: 064
     Dates: end: 20000316
  5. VIRAMUNE [Suspect]
     Dosage: EXPOSURE AT DELIVERY.
     Route: 064
     Dates: start: 20000316, end: 20000316
  6. VIRAMUNE [Suspect]
     Route: 048
     Dates: start: 20000317, end: 20000317
  7. ZIAGEN [Suspect]
     Dosage: EXPOSURE FROM WEEK 23 OF GESTATION.
     Route: 064
     Dates: end: 20000316
  8. AUGMENTIN [Concomitant]
     Dosage: EXPOSURE DURING GESTATION.
     Route: 064
  9. IRON [Concomitant]
     Dosage: EXPOSURE DURING GESTATION.
     Route: 064
  10. GYNOPEVARYL [Concomitant]
     Dosage: EXPOSURE DURING GESTATION.
     Route: 064
  11. POLYGYNAX [Concomitant]
     Dosage: EXPOSURE DURING GESTATION.
     Route: 064
  12. COLPOSEPTINE [Concomitant]
     Dosage: EXPOSURE DURING GESTATION.
     Route: 064
  13. VITAMINS [Concomitant]
     Dosage: EXPOSURE DURING GESTATION.
     Route: 064

REACTIONS (7)
  - ANAEMIA [None]
  - BLOOD LACTIC ACID INCREASED [None]
  - EXPRESSIVE LANGUAGE DISORDER [None]
  - HYPERTRIGLYCERIDAEMIA [None]
  - MICROCYTOSIS [None]
  - NEUTROPENIA [None]
  - THALASSAEMIA BETA [None]
